FAERS Safety Report 4432265-4 (Version None)
Quarter: 2004Q3

REPORT INFORMATION
  Report Type: 
  Country: None (occurrence: None)
  Receive Date: 20040819
  Receipt Date: 20040803
  Transmission Date: 20050211
  Serious: Yes (Hospitalization)
  Sender: FDA-Public Use
  Company Number: 139758USA

PATIENT
  Age: 64 Year
  Sex: Female

DRUGS (18)
  1. FLUOROURACIL [Suspect]
     Indication: COLORECTAL CANCER
     Dosage: 3429 MILLIGRAM INTRAVENOUS (NOS)
     Route: 042
     Dates: start: 20040615
  2. CETUXIMAB [Suspect]
     Indication: COLORECTAL CANCER
     Dosage: 428 MILLIGRAM 1XWK INTRAVENOUS (NOS)
     Route: 042
     Dates: start: 20040615
  3. OXALIPLATIN [Suspect]
     Indication: COLORECTAL CANCER
     Dosage: 125 MILLIGRAM INTRAVENOUS(NOS)
     Route: 042
     Dates: start: 20040615
  4. LEUCOVORIN CALCIUM [Suspect]
     Indication: COLORECTAL CANCER
     Dosage: 772 MILLIGRAM INTRAVENOUS (NOS)
     Route: 042
     Dates: start: 20040615
  5. PREMARIN [Concomitant]
  6. FELDENE [Concomitant]
  7. FLONASE [Concomitant]
  8. ZOCOR [Concomitant]
  9. LORAZEPAM [Concomitant]
  10. LEXAPRO [Concomitant]
  11. TRAMADOL HCL [Concomitant]
  12. WARFARIN SODIUM [Concomitant]
  13. BENADRYL [Concomitant]
  14. ALOXI [Concomitant]
  15. DECADRON [Concomitant]
  16. ATIVAN [Concomitant]
  17. CALCIUM GLUCONATE [Concomitant]
  18. MAGNESIUM SULFATE [Concomitant]

REACTIONS (12)
  - ABDOMINAL PAIN [None]
  - CHAPPED LIPS [None]
  - DEHYDRATION [None]
  - DIARRHOEA [None]
  - GLOSSODYNIA [None]
  - LIP BLISTER [None]
  - MARKEDLY REDUCED DIETARY INTAKE [None]
  - MUCOSAL INFLAMMATION [None]
  - NAUSEA [None]
  - ORAL CANDIDIASIS [None]
  - ORAL PAIN [None]
  - OROPHARYNGEAL SWELLING [None]
